FAERS Safety Report 7220574-5 (Version None)
Quarter: 2011Q1

REPORT INFORMATION
  Report Type: 
  Country: None (occurrence: None)
  Receive Date: 20110111
  Receipt Date: 20110103
  Transmission Date: 20110831
  Serious: Yes (Other)
  Sender: FDA-Public Use
  Company Number: US-PURDUE-USA-2011-0061696

PATIENT
  Sex: Male

DRUGS (1)
  1. OXYCONTIN [Suspect]
     Indication: DRUG ABUSE

REACTIONS (4)
  - DRUG ABUSE [None]
  - INTENTIONAL SELF-INJURY [None]
  - OPEN WOUND [None]
  - DRUG DEPENDENCE [None]
